FAERS Safety Report 16325738 (Version 1)
Quarter: 2019Q2

REPORT INFORMATION
  Report Type: Spontaneous
  Country: CA (occurrence: CA)
  Receive Date: 20190516
  Receipt Date: 20190516
  Transmission Date: 20190711
  Serious: No
  Sender: FDA-Public Use
  Company Number: None

PATIENT
  Age: 63 Year
  Sex: Female
  Weight: 65.25 kg

DRUGS (6)
  1. VIT D [Concomitant]
     Active Substance: VITAMIN D NOS
  2. OMEGA 3 [Concomitant]
     Active Substance: OMEGA-3 FATTY ACIDS
  3. CELEBREX [Concomitant]
     Active Substance: CELECOXIB
  4. GABAPENTIN. [Concomitant]
     Active Substance: GABAPENTIN
  5. OMEPRAZOLE. [Concomitant]
     Active Substance: OMEPRAZOLE
  6. JUBLIA [Suspect]
     Active Substance: EFINACONAZOLE
     Indication: FUNGAL INFECTION
     Dosage: ?          QUANTITY:1 BRUSH ON;OTHER ROUTE:TOENAIL?

REACTIONS (4)
  - Pain in extremity [None]
  - Pruritus [None]
  - Blister [None]
  - Product quality issue [None]

NARRATIVE: CASE EVENT DATE: 20190415
